FAERS Safety Report 21202451 (Version 1)
Quarter: 2022Q3

REPORT INFORMATION
  Report Type: Spontaneous
  Country: US (occurrence: US)
  Receive Date: 20220811
  Receipt Date: 20220811
  Transmission Date: 20221026
  Serious: No
  Sender: FDA-Public Use
  Company Number: US-OTSUKA-2022_033902

PATIENT
  Sex: Female
  Weight: 90.72 kg

DRUGS (2)
  1. REXULTI [Suspect]
     Active Substance: BREXPIPRAZOLE
     Indication: Anxiety
     Dosage: 2 MG
     Route: 065
  2. CITALOPRAM [Suspect]
     Active Substance: CITALOPRAM HYDROBROMIDE
     Indication: Anxiety
     Dosage: 40 MG
     Route: 065

REACTIONS (3)
  - Drug effective for unapproved indication [Unknown]
  - Inability to afford medication [Unknown]
  - Product use in unapproved indication [Unknown]
